FAERS Safety Report 4828553-X (Version None)
Quarter: 2005Q4

REPORT INFORMATION
  Report Type: 
  Country: None (occurrence: None)
  Receive Date: 20051110
  Receipt Date: 20051026
  Transmission Date: 20060501
  Serious: Yes (Hospitalization)
  Sender: FDA-Public Use
  Company Number: 2005S1009705

PATIENT
  Age: 29 Year
  Sex: Male
  Weight: 74.3899 kg

DRUGS (7)
  1. CLOZAPINE [Suspect]
     Indication: SCHIZOPHRENIA
     Dosage: SEE IMAGE
     Route: 048
  2. RANITIDINE HYDROCHLORIDE [Concomitant]
  3. LORATADINE [Concomitant]
  4. DOCUSATE SODIUM [Concomitant]
  5. MEDROXYPROGESTERONE ACETATE [Concomitant]
  6. VALPROATE SODIUM [Concomitant]
  7. VITAMINS [Concomitant]

REACTIONS (5)
  - ABDOMINAL PAIN LOWER [None]
  - APPENDICECTOMY [None]
  - GRANULOCYTOPENIA [None]
  - PYREXIA [None]
  - VOMITING [None]
